FAERS Safety Report 7368602-0 (Version None)
Quarter: 2011Q1

REPORT INFORMATION
  Report Type: 
  Country: None (occurrence: None)
  Receive Date: 20110323
  Receipt Date: 20110308
  Transmission Date: 20110831
  Serious: Yes (Hospitalization)
  Sender: FDA-Public Use
  Company Number: US-BAYER-201029119NA

PATIENT
  Sex: Female
  Weight: 52.1 kg

DRUGS (13)
  1. ADVAIR DISKUS 100/50 [Concomitant]
     Indication: CHRONIC OBSTRUCTIVE PULMONARY DISEASE
     Dosage: 250/50
     Route: 055
     Dates: start: 20100317
  2. SYNTHROID [Concomitant]
     Indication: HYPOTHYROIDISM
     Dosage: 50 ?G (DAILY DOSE), QD, ORAL
     Route: 048
     Dates: start: 20100519
  3. MULTI-VITAMIN [Concomitant]
     Indication: VITAMIN SUPPLEMENTATION
     Dosage: 1 DF (DAILY DOSE), QD, ORAL
     Route: 048
     Dates: start: 20100325
  4. PREVIDENT [Concomitant]
     Indication: DENTAL DISORDER PROPHYLAXIS
     Dosage: 5000 PLUS; 1 TUBE (TOTAL DAILY USE)
     Route: 048
     Dates: start: 20100716
  5. AGGRENOX [Concomitant]
     Indication: PLATELET AGGREGATION INHIBITION
     Dosage: 25 MG (DAILY DOSE), QD, ORAL
     Route: 048
     Dates: start: 20100317
  6. MEGACE ES (MEGESTROL ACETATE) [Concomitant]
     Dosage: 1
  7. ALBUTEROL [Concomitant]
     Indication: CHRONIC OBSTRUCTIVE PULMONARY DISEASE
     Dosage: 90 ?G (DAILY DOSE), , ORAL
     Route: 048
     Dates: start: 20100317
  8. AGGRENOX [Concomitant]
     Dosage: 200-25
  9. ALBUTEROL [Concomitant]
     Route: 055
  10. SORAFENIB [Suspect]
     Indication: ANTIPLATELET THERAPY
     Route: 048
     Dates: start: 20100716, end: 20100722
  11. KLONOPIN [Concomitant]
  12. DIPYRIDAMOLE [Concomitant]
     Indication: ANTIPLATELET THERAPY
     Dosage: 200 MG (DAILY DOSE), QD, ORAL
     Route: 048
     Dates: start: 20100317
  13. KLONOPIN [Concomitant]
     Indication: ANXIETY
     Dosage: 0.5 MG (DAILY DOSE), , ORAL
     Route: 048
     Dates: start: 20100317

REACTIONS (2)
  - URINARY TRACT INFECTION [None]
  - HEPATIC ENCEPHALOPATHY [None]
